FAERS Safety Report 5150788-X (Version None)
Quarter: 2006Q4

REPORT INFORMATION
  Report Type: 
  Country: None (occurrence: None)
  Receive Date: 20061108
  Receipt Date: 20061030
  Transmission Date: 20070319
  Serious: Yes (Other)
  Sender: FDA-Public Use
  Company Number: 2006JP004072

PATIENT
  Age: 87 Year
  Sex: Female

DRUGS (5)
  1. VESICARE [Suspect]
     Indication: HYPERTONIC BLADDER
     Dosage: 5 MG, UID/QD, ORAL
     Route: 048
     Dates: start: 20060918
  2. ARICEPT [Concomitant]
  3. ADALAT CONTROLLED RELEASE TABLET [Concomitant]
  4. AMLODIN (AMLODIPINE BESILATE) TABLET [Concomitant]
  5. BLOPRESS (CANDESARTAN  CILEXETIL) TABLET [Concomitant]

REACTIONS (1)
  - SINUS BRADYCARDIA [None]
